FAERS Safety Report 6971281-5 (Version None)
Quarter: 2010Q3

REPORT INFORMATION
  Report Type: 
  Country: None (occurrence: None)
  Receive Date: 20100824
  Receipt Date: 20100722
  Transmission Date: 20110219
  Serious: Yes (Hospitalization)
  Sender: FDA-Public Use
  Company Number: 311829

PATIENT
  Age: 73 Year
  Sex: Female
  Weight: 100.7 kg

DRUGS (3)
  1. VICTOZA [Suspect]
     Indication: TYPE 2 DIABETES MELLITUS
     Dosage: 1.8 MG, QD, SUBCUTANEOUS
     Route: 058
     Dates: start: 20100527, end: 20100703
  2. AMLODIPINE [Concomitant]
  3. TRILIPIX [Concomitant]

REACTIONS (3)
  - HELICOBACTER TEST POSITIVE [None]
  - HEPATIC STEATOSIS [None]
  - PANCREATITIS ACUTE [None]
